FAERS Safety Report 8889480 (Version 1)
Quarter: 2012Q4

REPORT INFORMATION
  Report Type: Spontaneous
  Country: IT (occurrence: None)
  Receive Date: 20121031
  Receipt Date: 20121031
  Transmission Date: 20130627
  Serious: Yes (Hospitalization)
  Sender: FDA-Public Use
  Company Number: 2012261739

PATIENT
  Age: 73 Year
  Sex: Male

DRUGS (7)
  1. FRAGMIN (DALTEPARIN SODIUM) SOLUTION FOR INJECTION [Suspect]
     Indication: DEEP VENOUS THROMBOSIS PROPHYLAXIS
     Route: 058
     Dates: start: 20120418, end: 20120422
  2. CARDIOASPIRIN [Suspect]
     Indication: ANTICOAGULANT THERAPY
     Route: 048
     Dates: start: 20120418, end: 20120422
  3. LASIX (FUROSEMIDE) [Concomitant]
  4. LANOXIN (DIGOXIN) [Concomitant]
  5. CRESTOR (ROSUVASTATIN) [Concomitant]
  6. ADALAT (NIFEDIPINE) [Concomitant]
  7. TRIATEC (RAMIPRIL) [Concomitant]

REACTIONS (2)
  - Epistaxis [None]
  - Loss of consciousness [None]
